FAERS Safety Report 7353548-4 (Version None)
Quarter: 2011Q1

REPORT INFORMATION
  Report Type: 
  Country: None (occurrence: None)
  Receive Date: 20110315
  Receipt Date: 20110308
  Transmission Date: 20110831
  Serious: Yes (Other)
  Sender: FDA-Public Use
  Company Number: US-ELI_LILLY_AND_COMPANY-US201010002198

PATIENT
  Sex: Female

DRUGS (7)
  1. LEVOTHYROXINE [Concomitant]
  2. BENICAR [Concomitant]
  3. NEXIUM [Concomitant]
  4. SIMVASTATIN [Concomitant]
  5. FORTEO [Suspect]
     Indication: OSTEOPOROSIS
     Dosage: 20 UG, DAILY (1/D)
  6. FORTEO [Suspect]
     Dosage: 20 UG, DAILY (1/D)
  7. NAPROXEN [Concomitant]

REACTIONS (8)
  - RHEUMATOID ARTHRITIS [None]
  - DARK CIRCLES UNDER EYES [None]
  - SINUSITIS [None]
  - INFLAMMATION [None]
  - SWELLING FACE [None]
  - BACK PAIN [None]
  - OEDEMA PERIPHERAL [None]
  - PAIN IN EXTREMITY [None]
